FAERS Safety Report 5880942-0 (Version None)
Quarter: 2008Q3

REPORT INFORMATION
  Report Type: 
  Country: None (occurrence: None)
  Receive Date: 20080910
  Receipt Date: 20080828
  Transmission Date: 20090109
  Serious: Yes (Other)
  Sender: FDA-Public Use
  Company Number: IPS_01193_2008

PATIENT
  Age: 72 Year
  Sex: Female

DRUGS (2)
  1. APO-GO (APO-GO AMPOILES 10 MG/ML SOLUTION FOR INJECTION - APOMORPHINE [Suspect]
     Indication: DRUG USE FOR UNKNOWN INDICATION
     Dosage: (5 MG PER HOUR FOR 1 YEAR SUBCUTANEOUS)
     Route: 058
     Dates: start: 20070615, end: 20080601
  2. MADOPAR [Concomitant]

REACTIONS (2)
  - COOMBS TEST POSITIVE [None]
  - HAEMOLYSIS [None]
